FAERS Safety Report 22603060 (Version 1)
Quarter: 2023Q2

REPORT INFORMATION
  Report Type: Spontaneous
  Country: IL (occurrence: IL)
  Receive Date: 20230615
  Receipt Date: 20230615
  Transmission Date: 20230721
  Serious: Yes (Hospitalization, Other)
  Sender: FDA-Public Use
  Company Number: IL-NOVOPROD-1076164

PATIENT
  Age: 17 Year
  Sex: Male

DRUGS (1)
  1. SAXENDA [Suspect]
     Active Substance: LIRAGLUTIDE
     Indication: Product used for unknown indication
     Dosage: 0.6 MG, QD
     Dates: start: 202302

REACTIONS (5)
  - Mood altered [Unknown]
  - Jaundice cholestatic [Unknown]
  - Hepatitis [Not Recovered/Not Resolved]
  - Acute kidney injury [Recovered/Resolved]
  - Cholelithiasis [Unknown]
